FAERS Safety Report 14573555 (Version 1)
Quarter: 2018Q1

REPORT INFORMATION
  Report Type: Spontaneous
  Country: JP (occurrence: JP)
  Receive Date: 20180226
  Receipt Date: 20180226
  Transmission Date: 20180509
  Serious: Yes (Other)
  Sender: FDA-Public Use
  Company Number: JP-TEVA-2018-JP-861150

PATIENT
  Age: 8 Year
  Sex: Male

DRUGS (1)
  1. IMATINIB [Suspect]
     Active Substance: IMATINIB
     Indication: ACUTE LYMPHOCYTIC LEUKAEMIA
     Dosage: 270-340 MG/M2/DAY
     Route: 065

REACTIONS (3)
  - Bone marrow failure [Unknown]
  - Hypoalbuminaemia [Unknown]
  - Ascites [Unknown]
